FAERS Safety Report 4292574-9 (Version None)
Quarter: 2004Q1

REPORT INFORMATION
  Report Type: 
  Country: None (occurrence: None)
  Receive Date: 20040211
  Receipt Date: 20040211
  Transmission Date: 20041129
  Serious: Yes (Other)
  Sender: FDA-Public Use
  Company Number: None

PATIENT
  Age: 45 Year
  Sex: Male
  Weight: 91.6266 kg

DRUGS (1)
  1. ZICAM NASAL SPRAY [Suspect]
     Dates: start: 20031215

REACTIONS (3)
  - AGEUSIA [None]
  - ANOSMIA [None]
  - BURNING SENSATION [None]
